FAERS Safety Report 18432396 (Version 1)
Quarter: 2020Q4

REPORT INFORMATION
  Report Type: Spontaneous
  Country: FR (occurrence: FR)
  Receive Date: 20201027
  Receipt Date: 20201027
  Transmission Date: 20210114
  Serious: Yes (Death)
  Sender: FDA-Public Use
  Company Number: FR-TEVA-2020-FR-1841222

PATIENT
  Age: 81 Year
  Sex: Female
  Weight: 69 kg

DRUGS (11)
  1. CEFTAZIDIME. [Suspect]
     Active Substance: CEFTAZIDIME
     Indication: ANTIBIOTIC PROPHYLAXIS
     Dosage: 2G
     Route: 042
     Dates: start: 20200729, end: 20200817
  2. DIFFU K [Concomitant]
     Active Substance: POTASSIUM CHLORIDE
  3. BISOPROLOL (FUMARATE ACIDE DE) [Concomitant]
     Active Substance: BISOPROLOL FUMARATE
  4. MONO TILDIEM [Concomitant]
     Active Substance: DILTIAZEM HYDROCHLORIDE
  5. ELIQUIS [Concomitant]
     Active Substance: APIXABAN
  6. TAHOR [Concomitant]
     Active Substance: ATORVASTATIN CALCIUM
  7. TOUJEO [Concomitant]
     Active Substance: INSULIN GLARGINE
  8. LASILIX [Concomitant]
     Active Substance: FUROSEMIDE
  9. NOVORAPID [Concomitant]
     Active Substance: INSULIN ASPART
  10. DOLIPRANE [Concomitant]
     Active Substance: ACETAMINOPHEN
  11. CIPROFLOXACINE [Suspect]
     Active Substance: CIPROFLOXACIN
     Indication: ANTIBIOTIC PROPHYLAXIS
     Dosage: 1500MG
     Route: 048
     Dates: start: 20200729, end: 20200817

REACTIONS (2)
  - Cardiac arrest [Fatal]
  - Encephalopathy [Fatal]

NARRATIVE: CASE EVENT DATE: 20200817
